FAERS Safety Report 13416512 (Version 1)
Quarter: 2017Q2

REPORT INFORMATION
  Report Type: Spontaneous
  Country: DE (occurrence: DE)
  Receive Date: 20170406
  Receipt Date: 20170406
  Transmission Date: 20170830
  Serious: Yes (Other)
  Sender: FDA-Public Use
  Company Number: DE-ALLERGAN-1713425US

PATIENT
  Age: 17 Year
  Sex: Male

DRUGS (3)
  1. EUTYROX [Concomitant]
     Dosage: UNK
     Dates: start: 20170303
  2. ESCITALOPRAM OXALATE - BP [Suspect]
     Active Substance: ESCITALOPRAM OXALATE
     Dosage: UNK
     Route: 048
  3. ESCITALOPRAM OXALATE - BP [Suspect]
     Active Substance: ESCITALOPRAM OXALATE
     Indication: ANXIETY DISORDER
     Dosage: 15 MG, UNK
     Route: 048
     Dates: start: 201605

REACTIONS (5)
  - Off label use [Unknown]
  - Hypothyroidism [Not Recovered/Not Resolved]
  - Weight increased [Unknown]
  - Abdominal pain upper [Unknown]
  - Growth retardation [Unknown]

NARRATIVE: CASE EVENT DATE: 201702
